FAERS Safety Report 7531570-2 (Version None)
Quarter: 2011Q2

REPORT INFORMATION
  Report Type: 
  Country: None (occurrence: None)
  Receive Date: 20110606
  Receipt Date: 20110606
  Transmission Date: 20111010
  Serious: No
  Sender: FDA-Public Use
  Company Number: None

PATIENT
  Age: 32 Year
  Sex: Male

DRUGS (2)
  1. DARUNAVIR ETHANOLATE [Suspect]
     Dates: start: 20090825, end: 20090930
  2. RITONAVIR [Suspect]
     Dates: start: 20090611, end: 20091003

REACTIONS (4)
  - LIVER INJURY [None]
  - SMOOTH MUSCLE ANTIBODY POSITIVE [None]
  - CHOLESTASIS [None]
  - JAUNDICE [None]
